FAERS Safety Report 22321660 (Version 2)
Quarter: 2023Q2

REPORT INFORMATION
  Report Type: Report from Study
  Country: JP (occurrence: JP)
  Receive Date: 20230515
  Receipt Date: 20230623
  Transmission Date: 20230722
  Serious: Yes (Other)
  Sender: FDA-Public Use
  Company Number: JP-002147023-NVSJ2023JP007393

PATIENT
  Age: 72 Year
  Sex: Male
  Weight: 64.5 kg

DRUGS (7)
  1. LUTATHERA [Suspect]
     Active Substance: LUTETIUM OXODOTREOTIDE LU-177
     Indication: Neuroendocrine tumour
     Dosage: 7.2 GBQ
     Route: 041
     Dates: start: 20220209, end: 20220209
  2. LUTATHERA [Suspect]
     Active Substance: LUTETIUM OXODOTREOTIDE LU-177
     Dosage: UNK
     Route: 041
  3. LUTATHERA [Suspect]
     Active Substance: LUTETIUM OXODOTREOTIDE LU-177
     Dosage: 7.4 GBQ
     Route: 041
     Dates: start: 20220707, end: 20220707
  4. ARGININE\LYSINE [Suspect]
     Active Substance: ARGININE\LYSINE
     Indication: Product used for unknown indication
     Dosage: UNK
     Route: 041
  5. ARGININE\LYSINE [Suspect]
     Active Substance: ARGININE\LYSINE
     Dosage: UNK
     Route: 041
  6. ARGININE\LYSINE [Suspect]
     Active Substance: ARGININE\LYSINE
     Dosage: UNK
     Route: 041
  7. KYTRIL [Concomitant]
     Active Substance: GRANISETRON HYDROCHLORIDE
     Indication: Prophylaxis of nausea and vomiting
     Dosage: UNK
     Route: 065

REACTIONS (6)
  - Myelosuppression [Not Recovered/Not Resolved]
  - Anaemia [Unknown]
  - Platelet count decreased [Unknown]
  - Lymphocyte count decreased [Unknown]
  - Blood creatinine increased [Unknown]
  - Blood urea increased [Unknown]

NARRATIVE: CASE EVENT DATE: 20220706
